FAERS Safety Report 8965356 (Version 2)
Quarter: 2012Q4

REPORT INFORMATION
  Report Type: 
  Country: US (occurrence: US)
  Receive Date: 20121213
  Receipt Date: 20121231
  Transmission Date: 20130627
  Serious: No
  Sender: FDA-Public Use
  Company Number: US-VERTEX PHARMACEUTICALS INC.-2012-025913

PATIENT
  Age: 54 Year
  Sex: Male
  Weight: 83 kg

DRUGS (9)
  1. INCIVEK [Suspect]
     Indication: HEPATITIS C
     Dosage: 750 mg, tid
     Route: 048
     Dates: start: 20121121
  2. RIBAVIRIN [Suspect]
     Indication: HEPATITIS C
     Dosage: 600 mg, bid
     Route: 048
     Dates: start: 20121121
  3. PEGINTERFERON ALFA-2B [Suspect]
     Indication: HEPATITIS C
     Dosage: 120 ?g, qw
     Route: 058
     Dates: start: 20121121
  4. OXYCODONE [Concomitant]
     Indication: PAIN
     Dosage: 20 mg, qd
  5. OXYCODONE [Concomitant]
     Indication: HEADACHE
     Dosage: 10 mg, prn
     Dates: start: 20121220
  6. REMERON [Concomitant]
  7. KLONOPIN [Concomitant]
     Indication: ANXIETY
     Dosage: 1 mg, qd
     Route: 048
     Dates: end: 20121202
  8. KLONOPIN [Concomitant]
     Dosage: 2 mg, qd
     Route: 048
     Dates: start: 20121202
  9. AMBIEN [Concomitant]
     Dosage: 10 mg, qhs
     Route: 048

REACTIONS (8)
  - Dyspnoea exertional [Not Recovered/Not Resolved]
  - Headache [Not Recovered/Not Resolved]
  - Anxiety [Not Recovered/Not Resolved]
  - Influenza like illness [Not Recovered/Not Resolved]
  - Night sweats [Not Recovered/Not Resolved]
  - Pain [Not Recovered/Not Resolved]
  - Nausea [Not Recovered/Not Resolved]
  - Pruritus [Not Recovered/Not Resolved]
